FAERS Safety Report 9310229 (Version 1)
Quarter: 2013Q2

REPORT INFORMATION
  Report Type: Spontaneous
  Country: US (occurrence: US)
  Receive Date: 20130527
  Receipt Date: 20130527
  Transmission Date: 20140414
  Serious: Yes (Disabling)
  Sender: FDA-Public Use
  Company Number: PHEH2013US011428

PATIENT
  Sex: Female

DRUGS (9)
  1. RECLAST [Suspect]
     Route: 042
     Dates: start: 20130517
  2. SYNTHROID [Concomitant]
     Dosage: UNK
  3. CALCITROL [Concomitant]
     Dosage: 3 PER DAY
  4. VITAMIN D [Concomitant]
     Dosage: 3000 UG, UNK
  5. MULTI-VIT WITH FLUORIDE AND IRON [Concomitant]
  6. FOLIC ACID [Concomitant]
     Dosage: UNK
  7. MELATONIN [Concomitant]
     Dosage: UNK
  8. TRAZEDONE [Concomitant]
     Dosage: UNK
  9. SYNTHROID [Concomitant]

REACTIONS (2)
  - Back injury [Unknown]
  - Arthralgia [Unknown]
